FAERS Safety Report 6227411-6 (Version None)
Quarter: 2009Q2

REPORT INFORMATION
  Report Type: 
  Country: None (occurrence: None)
  Receive Date: 20090610
  Receipt Date: 20090610
  Transmission Date: 20091009
  Serious: Yes (Hospitalization)
  Sender: FDA-Public Use
  Company Number: None

PATIENT
  Sex: Male
  Weight: 107.9561 kg

DRUGS (2)
  1. PEGASYS [Suspect]
     Indication: HEPATITIS C
     Dosage: 180 MCG/ 0.5ML WEEKLY SQ
     Dates: start: 20090504, end: 20090604
  2. RIBAVIRIN [Suspect]
     Indication: HEPATITIS C
     Dosage: 200 MG 3CAP AM/4CAP PM PO
     Route: 048
     Dates: start: 20090504, end: 20090604

REACTIONS (5)
  - BACTERIAL INFECTION [None]
  - CHEST PAIN [None]
  - HYPOAESTHESIA [None]
  - PLATELET COUNT DECREASED [None]
  - WHITE BLOOD CELL COUNT DECREASED [None]
